FAERS Safety Report 7722021-3 (Version None)
Quarter: 2011Q3

REPORT INFORMATION
  Report Type: 
  Country: None (occurrence: None)
  Receive Date: 20110831
  Receipt Date: 20110829
  Transmission Date: 20111222
  Serious: Yes (Death, Other)
  Sender: FDA-Public Use
  Company Number: US-AMGEN-QUU391254

PATIENT
  Age: 84 Year
  Sex: Male
  Weight: 76 kg

DRUGS (2)
  1. CORTICOSTEROID NOS [Concomitant]
     Dosage: UNK UNK, UNK
     Dates: start: 20070403
  2. NPLATE [Suspect]
     Indication: IDIOPATHIC THROMBOCYTOPENIC PURPURA
     Dosage: 10 MUG/KG, UNK
     Dates: start: 20081113, end: 20090522

REACTIONS (2)
  - GENERAL PHYSICAL HEALTH DETERIORATION [None]
  - WOUND DEHISCENCE [None]
